FAERS Safety Report 8549695-1 (Version None)
Quarter: 2012Q3

REPORT INFORMATION
  Report Type: 
  Country: None (occurrence: None)
  Receive Date: 20120730
  Receipt Date: 20120725
  Transmission Date: 20120928
  Serious: Yes (Hospitalization)
  Sender: FDA-Public Use
  Company Number: US-PFIZER INC-2012133515

PATIENT
  Sex: Female
  Weight: 77 kg

DRUGS (5)
  1. PROTONIX [Suspect]
     Indication: GASTROOESOPHAGEAL REFLUX DISEASE
     Dosage: 40 MG, 1X/DAY
     Route: 048
  2. SPIRIVA [Suspect]
     Dosage: UNK
  3. LYRICA [Suspect]
     Indication: FIBROMYALGIA
     Dosage: UNK
     Route: 048
  4. LYRICA [Suspect]
     Dosage: UNK
     Route: 048
     Dates: start: 20120712
  5. CELEXA [Concomitant]
     Indication: DEPRESSION
     Dosage: UNK

REACTIONS (3)
  - CEREBROVASCULAR ACCIDENT [None]
  - DYSPHONIA [None]
  - CONFUSIONAL STATE [None]
